FAERS Safety Report 20065935 (Version 1)
Quarter: 2021Q4

REPORT INFORMATION
  Report Type: Spontaneous
  Country: US (occurrence: US)
  Receive Date: 20211114
  Receipt Date: 20211114
  Transmission Date: 20220303
  Serious: No
  Sender: FDA-Public Use
  Company Number: US-ELI_LILLY_AND_COMPANY-US202111004882

PATIENT

DRUGS (1)
  1. TRULICITY [Suspect]
     Active Substance: DULAGLUTIDE
     Indication: Blood glucose decreased
     Dosage: UNK UNK, UNKNOWN
     Route: 058

REACTIONS (3)
  - Nephrolithiasis [Unknown]
  - Chromaturia [Unknown]
  - Urinary tract infection [Unknown]
